FAERS Safety Report 8346885-8 (Version None)
Quarter: 2012Q2

REPORT INFORMATION
  Report Type: 
  Country: None (occurrence: None)
  Receive Date: 20120507
  Receipt Date: 20120507
  Transmission Date: 20120825
  Serious: Yes (Hospitalization)
  Sender: FDA-Public Use
  Company Number: None

PATIENT
  Age: 66 Year
  Sex: Male
  Weight: 52.8 kg

DRUGS (2)
  1. RIBAVIRIN [Suspect]
     Indication: HEPATITIS C
     Route: 048
     Dates: start: 20120110, end: 20120412
  2. BOCEPREVIR [Suspect]
     Indication: HEPATITIS C
     Dosage: 800 MG TID PO
     Dates: start: 20120228, end: 20120412

REACTIONS (6)
  - PARAESTHESIA [None]
  - PALPITATIONS [None]
  - ANAEMIA [None]
  - DYSPNOEA [None]
  - FATIGUE [None]
  - DECREASED APPETITE [None]
